FAERS Safety Report 18440146 (Version 1)
Quarter: 2020Q4

REPORT INFORMATION
  Report Type: Spontaneous
  Country: US (occurrence: US)
  Receive Date: 20201029
  Receipt Date: 20201029
  Transmission Date: 20210114
  Serious: Yes (Life-Threatening, Disabling, Other)
  Sender: FDA-Public Use
  Company Number: None

PATIENT
  Age: 72 Year
  Sex: Male
  Weight: 83.25 kg

DRUGS (9)
  1. TORSEMIDE. [Concomitant]
     Active Substance: TORSEMIDE
  2. TANSULOCIN [Concomitant]
  3. ALLOPURINOL. [Concomitant]
     Active Substance: ALLOPURINOL
  4. VITAMINS [Concomitant]
     Active Substance: VITAMINS
  5. OCTAGAM IMMUNE GLOBULIN (HUMAN) [Suspect]
     Active Substance: HUMAN IMMUNOGLOBULIN G
     Indication: PRIMARY IMMUNODEFICIENCY SYNDROME
     Dosage: ?          QUANTITY:1 IV BAG;?
     Route: 042
     Dates: start: 20190805
  6. CITRIZINE [Concomitant]
  7. PSEUEPHEDERINE [Concomitant]
  8. SUPPLEMENTS [Concomitant]
     Active Substance: UNSPECIFIED INGREDIENT
  9. AMLODAPINE/OLMESARTAN [Concomitant]
     Active Substance: AMLODIPINE BESYLATE\OLMESARTAN MEDOXOMIL

REACTIONS (1)
  - Q fever [None]

NARRATIVE: CASE EVENT DATE: 20190805
